FAERS Safety Report 8517274-8 (Version None)
Quarter: 2012Q3

REPORT INFORMATION
  Report Type: 
  Country: None (occurrence: None)
  Receive Date: 20120718
  Receipt Date: 20120712
  Transmission Date: 20120928
  Serious: Yes (Other)
  Sender: FDA-Public Use
  Company Number: JP-SANOFI-AVENTIS-2012SA050034

PATIENT
  Age: 70 Year
  Sex: Male

DRUGS (18)
  1. CLOSTRIDIUM BUTYRICUM [Concomitant]
     Route: 048
  2. GLIMEPIRIDE [Concomitant]
  3. LOSARTAN POTASSIUM [Concomitant]
  4. METILDIGOXIN [Concomitant]
  5. TAMSULOSIN HYDROCHLORIDE [Concomitant]
     Route: 048
  6. DEXAMETHASONE SODIUM PHOSPHATE [Concomitant]
  7. WARFARIN POTASSIUM [Concomitant]
     Route: 048
  8. AMLODIPINE BESYLATE [Concomitant]
     Route: 048
  9. SENNOSIDE A [Concomitant]
  10. MAGNESIUM OXIDE [Concomitant]
     Route: 048
  11. SITAGLIPTIN PHOSPHATE [Concomitant]
  12. AZOSEMIDE [Concomitant]
  13. MEQUITAZINE [Concomitant]
     Route: 048
  14. FERROUS FUMARATE [Concomitant]
  15. XELODA [Concomitant]
  16. OXALIPLATIN [Suspect]
     Route: 041
  17. ALOXI [Concomitant]
  18. LOXOPROFEN SODIUM [Concomitant]
     Route: 048

REACTIONS (1)
  - INTERNATIONAL NORMALISED RATIO INCREASED [None]
